FAERS Safety Report 5975950-5 (Version None)
Quarter: 2008Q4

REPORT INFORMATION
  Report Type: 
  Country: None (occurrence: None)
  Receive Date: 20081124
  Receipt Date: 20080102
  Transmission Date: 20090506
  Serious: Yes (Other)
  Sender: FDA-Public Use
  Company Number: 43975

PATIENT
  Age: 98 Year
  Sex: Female
  Weight: 53.0709 kg

DRUGS (1)
  1. AMIODARONE HCL [Suspect]
     Indication: VENTRICULAR ARRHYTHMIA
     Dosage: 900MG/D5W 500ML INFUSE AS PER PROTOCOL
     Dates: start: 20080102

REACTIONS (1)
  - EXTRAVASATION [None]
